FAERS Safety Report 6339091-X (Version None)
Quarter: 2009Q3

REPORT INFORMATION
  Report Type: 
  Country: None (occurrence: None)
  Receive Date: 20090903
  Receipt Date: 20090827
  Transmission Date: 20100115
  Serious: Yes (Death)
  Sender: FDA-Public Use
  Company Number: US-BRISTOL-MYERS SQUIBB COMPANY-14653992

PATIENT
  Age: 39 Year
  Sex: Male
  Weight: 104 kg

DRUGS (9)
  1. ABILIFY [Suspect]
     Indication: DEPRESSION
     Route: 048
     Dates: start: 20060616
  2. ABILIFY [Suspect]
     Indication: BIPOLAR DISORDER
     Route: 048
     Dates: start: 20060616
  3. ATIVAN [Suspect]
     Dosage: 1-2 PO QHS
     Route: 048
     Dates: start: 20060616
  4. PAXIL [Suspect]
     Dosage: QHS
     Dates: end: 20060616
  5. ZYPREXA [Suspect]
     Dosage: QHS
     Dates: end: 20060616
  6. PROPRANOLOL [Concomitant]
     Dates: start: 20050609
  7. LITHIUM CARBONATE [Concomitant]
     Dosage: 18MAY06: INCREASED TO 900MG BID
     Dates: start: 20041129
  8. ANTABUSE [Concomitant]
     Dosage: QHS
     Dates: start: 20021201
  9. ANTIDEPRESSANT [Concomitant]

REACTIONS (4)
  - CONVULSION [None]
  - MYOCARDIAL INFARCTION [None]
  - SWELLING FACE [None]
  - SWOLLEN TONGUE [None]
